FAERS Safety Report 6304401-6 (Version None)
Quarter: 2009Q3

REPORT INFORMATION
  Report Type: 
  Country: None (occurrence: None)
  Receive Date: 20090811
  Receipt Date: 20090730
  Transmission Date: 20100115
  Serious: Yes (Hospitalization)
  Sender: FDA-Public Use
  Company Number: PHHY2009JP32970

PATIENT
  Sex: Male

DRUGS (2)
  1. SALAGEN [Suspect]
     Indication: DRY MOUTH
     Dosage: 5 MG/DAY
     Route: 048
     Dates: start: 20080512, end: 20080617
  2. AMOBAN [Concomitant]
     Dosage: 7.5 MG
     Dates: start: 20070105

REACTIONS (2)
  - BLOOD PRESSURE DECREASED [None]
  - HYPERHIDROSIS [None]
